FAERS Safety Report 13019230 (Version 1)
Quarter: 2016Q4

REPORT INFORMATION
  Report Type: Spontaneous
  Country: US (occurrence: US)
  Receive Date: 20161212
  Receipt Date: 20161212
  Transmission Date: 20170207
  Serious: No
  Sender: FDA-Public Use
  Company Number: US-RECKITT BENCKISER HEALTHCARE INT LIMITED-RB-90851-2016

PATIENT
  Sex: Male

DRUGS (1)
  1. DELSYM [Suspect]
     Active Substance: DEXTROMETHORPHAN
     Indication: ABNORMAL BEHAVIOUR
     Dosage: 15 MG, BID
     Route: 065
     Dates: start: 20160822

REACTIONS (2)
  - Product use issue [Unknown]
  - No adverse event [Unknown]
